FAERS Safety Report 6773172-1 (Version None)
Quarter: 2010Q2

REPORT INFORMATION
  Report Type: 
  Country: None (occurrence: None)
  Receive Date: 20100520
  Receipt Date: 20090310
  Transmission Date: 20101027
  Serious: Yes (Other)
  Sender: FDA-Public Use
  Company Number: 2009181195

PATIENT
  Age: 53 Year
  Sex: Female
  Weight: 90.7 kg

DRUGS (3)
  1. PROVERA [Suspect]
     Indication: MENOPAUSE
     Dosage: 2.5 MG
     Dates: start: 19970101, end: 20000101
  2. MEDROXYPROGESTERONE ACETATE [Suspect]
     Indication: MENOPAUSE
     Dosage: 2.5 MG
     Dates: start: 19940101, end: 19990101
  3. PREMARIN [Suspect]
     Indication: MENOPAUSE
     Dosage: 0.625 MG
     Dates: start: 19960101, end: 20000101

REACTIONS (1)
  - BREAST CANCER FEMALE [None]
